FAERS Safety Report 20817699 (Version 1)
Quarter: 2022Q2

REPORT INFORMATION
  Report Type: Spontaneous
  Country: GB (occurrence: GB)
  Receive Date: 20220512
  Receipt Date: 20220512
  Transmission Date: 20220721
  Serious: Yes (Other)
  Sender: FDA-Public Use
  Company Number: GB-002147023-NVSC2022GB098252

PATIENT
  Sex: Male

DRUGS (2)
  1. PREDNISOLONE [Suspect]
     Active Substance: PREDNISOLONE
     Indication: Product used for unknown indication
     Dosage: UNK, PREDNISOLONE (MANUFACTURER UNKNOWN) 5 MG
     Route: 065
  2. TACROLIMUS [Suspect]
     Active Substance: TACROLIMUS
     Indication: Product used for unknown indication
     Dosage: UNK, THE PATIENT RECEIVED ADOPORT (TACROLIMUS) 2 MG, PATIENT HAD ONLY 5 DAYS OF THE 1 MG ADOPORT LEF
     Route: 065

REACTIONS (1)
  - Terminal state [Unknown]
